FAERS Safety Report 24358858 (Version 1)
Quarter: 2024Q3

REPORT INFORMATION
  Report Type: Spontaneous
  Country: US (occurrence: None)
  Receive Date: 20240924
  Receipt Date: 20240924
  Transmission Date: 20241017
  Serious: Yes (Other)
  Sender: Public
  Company Number: None

PATIENT
  Age: 59 Year
  Sex: Male

DRUGS (1)
  1. NIVOLUMAB [Suspect]
     Active Substance: NIVOLUMAB
     Route: 040

REACTIONS (4)
  - Infusion related reaction [None]
  - Back pain [None]
  - Chills [None]
  - Atrial fibrillation [None]

NARRATIVE: CASE EVENT DATE: 20240918
